FAERS Safety Report 4293917-2 (Version None)
Quarter: 2004Q1

REPORT INFORMATION
  Report Type: 
  Country: None (occurrence: None)
  Receive Date: 20040210
  Receipt Date: 20040128
  Transmission Date: 20041129
  Serious: Yes (Hospitalization, Disabling)
  Sender: FDA-Public Use
  Company Number: 200408915

PATIENT
  Age: 50 Year
  Sex: Male

DRUGS (10)
  1. STREPTASE [Suspect]
     Indication: MYOCARDIAL INFARCTION
     Dosage: 1.5 MIU DAILY IV
     Route: 042
     Dates: start: 20031222, end: 20031222
  2. ASPIRIN [Suspect]
     Indication: MYOCARDIAL INFARCTION
     Dosage: 150 MG DAILY PO
     Route: 048
     Dates: start: 20031222
  3. ENOXAPARIN SODIUM [Suspect]
     Indication: MYOCARDIAL INFARCTION
     Dosage: IV
     Route: 042
     Dates: start: 20031222, end: 20031229
  4. CLOPIDOGREL BISULFATE [Concomitant]
  5. STORVAS [Concomitant]
  6. RESTYL [Concomitant]
  7. LASIX [Concomitant]
  8. NITROGLYCERIN [Concomitant]
  9. SORBITRATE [Concomitant]
  10. AMLODIPINE [Concomitant]

REACTIONS (10)
  - COMPARTMENT SYNDROME [None]
  - ECCHYMOSIS [None]
  - HAEMATOMA [None]
  - HAEMOGLOBIN DECREASED [None]
  - INFUSION SITE PAIN [None]
  - INFUSION SITE SWELLING [None]
  - INJECTION SITE HAEMORRHAGE [None]
  - INJECTION SITE INDURATION [None]
  - JOINT RANGE OF MOTION DECREASED [None]
  - OEDEMA PERIPHERAL [None]
